FAERS Safety Report 20909220 (Version 1)
Quarter: 2022Q2

REPORT INFORMATION
  Report Type: Spontaneous
  Country: CZ (occurrence: CZ)
  Receive Date: 20220603
  Receipt Date: 20220603
  Transmission Date: 20220720
  Serious: Yes (Other)
  Sender: FDA-Public Use
  Company Number: CZ-AMGEN-CZESP2022094509

PATIENT
  Age: 42 Year
  Sex: Female

DRUGS (3)
  1. XGEVA [Suspect]
     Active Substance: DENOSUMAB
     Indication: Breast cancer
     Dosage: 120 MILLIGRAM, QMO
     Route: 058
  2. RIBOCICLIB [Concomitant]
     Active Substance: RIBOCICLIB
     Dosage: 600 MILLIGRAM, QD (21 DAYS FOLLOWED BY A WEEKLY BREAK)
     Dates: start: 202010
  3. LETROZOLE [Concomitant]
     Active Substance: LETROZOLE
     Dosage: UNK
     Dates: start: 202010

REACTIONS (1)
  - Neutropenia [Unknown]
